FAERS Safety Report 6438597-2 (Version None)
Quarter: 2009Q4

REPORT INFORMATION
  Report Type: 
  Country: None (occurrence: None)
  Receive Date: 20091110
  Receipt Date: 20091026
  Transmission Date: 20100525
  Serious: Yes (Death, Hospitalization, Other)
  Sender: FDA-Public Use
  Company Number: 2009AC000133

PATIENT
  Sex: Male

DRUGS (32)
  1. DIGOXIN [Suspect]
     Dosage: 0.125 MG;QD;PO
     Route: 048
  2. SOLU-MEDROL [Concomitant]
  3. ROCEPHIN [Concomitant]
  4. ZOCOR [Concomitant]
  5. LOPRESSOR [Concomitant]
  6. XANAX [Concomitant]
  7. LISINOPRIL [Concomitant]
  8. LEVOPHED [Concomitant]
  9. PLAVIX [Concomitant]
  10. ADVAIR DISKUS 100/50 [Concomitant]
  11. PROTONIX [Concomitant]
  12. ALTROVENT [Concomitant]
  13. ASPIRIN [Concomitant]
  14. PREDNISONE FORTE EYE DROPS [Concomitant]
  15. PREDNISONE [Concomitant]
  16. SPIRIVA [Concomitant]
  17. IMDUR [Concomitant]
  18. XOPENEX [Concomitant]
  19. K-DUR [Concomitant]
  20. LASIX [Concomitant]
  21. DECADRON [Concomitant]
  22. DIAMOX SRC [Concomitant]
  23. SATOLOL [Concomitant]
  24. OXYGEN [Concomitant]
  25. SINGULAIR [Concomitant]
  26. CEFTIN [Concomitant]
  27. PRILOSEC [Concomitant]
  28. IMDUR [Concomitant]
  29. SPIRIVA [Concomitant]
  30. METOPROLOL TARTRATE [Concomitant]
  31. ADVAIR DISKUS 100/50 [Concomitant]
  32. XANAX [Concomitant]

REACTIONS (51)
  - ASTHENIA [None]
  - ATRIAL FIBRILLATION [None]
  - BLOOD MAGNESIUM DECREASED [None]
  - BRONCHITIS [None]
  - CARDIO-RESPIRATORY ARREST [None]
  - CAROTID ARTERY STENOSIS [None]
  - CHEST PAIN [None]
  - CHRONIC OBSTRUCTIVE PULMONARY DISEASE [None]
  - CONDITION AGGRAVATED [None]
  - CORONARY ARTERY OCCLUSION [None]
  - COUGH [None]
  - DECREASED APPETITE [None]
  - DYSPNOEA [None]
  - ECCHYMOSIS [None]
  - ECONOMIC PROBLEM [None]
  - EMOTIONAL DISTRESS [None]
  - EMPHYSEMA [None]
  - ERYTHEMA [None]
  - FAMILY STRESS [None]
  - FATIGUE [None]
  - HAEMOGLOBIN DECREASED [None]
  - HAEMOPTYSIS [None]
  - HEADACHE [None]
  - HYPERCAPNIA [None]
  - HYPERLIPIDAEMIA [None]
  - HYPERTENSION [None]
  - HYPOKALAEMIA [None]
  - HYPOTENSION [None]
  - HYPOXIA [None]
  - LEUKOCYTOSIS [None]
  - MITRAL VALVE INCOMPETENCE [None]
  - MULTIPLE INJURIES [None]
  - MYOCARDIAL INFARCTION [None]
  - OEDEMA PERIPHERAL [None]
  - PAIN [None]
  - PARTNER STRESS [None]
  - PLATELET COUNT DECREASED [None]
  - PNEUMONIA [None]
  - PRODUCTIVE COUGH [None]
  - RESPIRATORY FAILURE [None]
  - RHINORRHOEA [None]
  - SINUS DISORDER [None]
  - SOCIAL PROBLEM [None]
  - SWELLING FACE [None]
  - TACHYCARDIA [None]
  - THROMBOCYTOPENIA [None]
  - TREATMENT FAILURE [None]
  - TREMOR [None]
  - TRICUSPID VALVE INCOMPETENCE [None]
  - VENTRICULAR HYPOKINESIA [None]
  - WHEEZING [None]
